FAERS Safety Report 14879623 (Version 2)
Quarter: 2018Q2

REPORT INFORMATION
  Report Type: Spontaneous
  Country: CO (occurrence: CO)
  Receive Date: 20180511
  Receipt Date: 20180519
  Transmission Date: 20180711
  Serious: Yes (Other)
  Sender: FDA-Public Use
  Company Number: CO-AUROBINDO-AUR-APL-2018-018035

PATIENT
  Age: 29 Year
  Sex: Female

DRUGS (1)
  1. EMTRICITABINE AND TENOFOVIR [Suspect]
     Active Substance: EMTRICITABINE\TENOFOVIR
     Indication: PROPHYLACTIC CHEMOTHERAPY
     Dosage: UNK
     Route: 048
     Dates: start: 20180130, end: 20180216

REACTIONS (8)
  - Disability [Recovered/Resolved]
  - Eye oedema [Unknown]
  - Drug intolerance [Recovered/Resolved]
  - Hypotension [Unknown]
  - Diarrhoea [Unknown]
  - Decreased appetite [Unknown]
  - Headache [Unknown]
  - Abdominal distension [Unknown]

NARRATIVE: CASE EVENT DATE: 20180202
